FAERS Safety Report 7282530-0 (Version None)
Quarter: 2011Q1

REPORT INFORMATION
  Report Type: 
  Country: None (occurrence: None)
  Receive Date: 20110209
  Receipt Date: 20110203
  Transmission Date: 20110831
  Serious: Yes (Other)
  Sender: FDA-Public Use
  Company Number: US-B.I. PHARMACEUTICALS,INC./RIDGEFIELD-2011-DE-00902GD

PATIENT
  Age: 20 Year
  Sex: Female

DRUGS (5)
  1. LEVOFLOXACIN [Concomitant]
     Indication: ASTHMA
     Dosage: 750 MG
     Route: 042
  2. IPRATROPIUMBROMID SALBUTAMOLSULFAT [Suspect]
     Indication: ASTHMA
     Dosage: SEVEN BREATHING TREATMENTS
     Route: 055
  3. PRIMATENE MIST [Suspect]
     Indication: ASTHMA
     Dosage: UP TO ONE 15-ML VIAL DELIVERING 270 PUFFS (0.22 MG EPINEPHRINE/INHALATION) OVER 1 OR 2 DAYS
     Route: 055
  4. OXYGEN [Concomitant]
     Indication: ASTHMA
     Route: 055
  5. METHYLPREDNISOLONE [Suspect]
     Indication: ASTHMA
     Dosage: SEVERAL DOSES (ONE DOSE OF 40 MG AND 2 DOSES OF 125 MG)
     Route: 042

REACTIONS (3)
  - RESPIRATORY DISTRESS [None]
  - METABOLIC ACIDOSIS [None]
  - HEART RATE INCREASED [None]
